FAERS Safety Report 16047459 (Version 1)
Quarter: 2019Q1

REPORT INFORMATION
  Report Type: Spontaneous
  Country: CN (occurrence: CN)
  Receive Date: 20190307
  Receipt Date: 20190307
  Transmission Date: 20190418
  Serious: Yes (Hospitalization)
  Sender: FDA-Public Use
  Company Number: CN-PFIZER INC-2019099661

PATIENT
  Age: 31 Year
  Sex: Female
  Weight: 52 kg

DRUGS (4)
  1. TIENAM [Suspect]
     Active Substance: CILASTATIN SODIUM\IMIPENEM
     Indication: INFECTION
     Dosage: UNK
     Dates: start: 201902
  2. VORICONAZOLE. [Suspect]
     Active Substance: VORICONAZOLE
     Indication: INFECTION
     Dosage: UNK
     Dates: start: 201902
  3. VANCOMYCIN [Suspect]
     Active Substance: VANCOMYCIN
     Indication: INFECTION
     Dosage: UNK
     Dates: start: 201902
  4. CEFTIOFUR SODIUM. [Concomitant]
     Active Substance: CEFTIOFUR SODIUM
     Indication: INFECTION
     Dosage: UNK

REACTIONS (3)
  - Heart rate increased [Recovering/Resolving]
  - Dyspnoea [Recovering/Resolving]
  - Oxygen saturation decreased [Recovering/Resolving]

NARRATIVE: CASE EVENT DATE: 20190228
